FAERS Safety Report 10600903 (Version 1)
Quarter: 2014Q4

REPORT INFORMATION
  Report Type: Spontaneous
  Country: CN (occurrence: CN)
  Receive Date: 20141124
  Receipt Date: 20141124
  Transmission Date: 20150529
  Serious: Yes (Death, Other)
  Sender: FDA-Public Use
  Company Number: CN-CIPLA LTD.-2014CN02004

PATIENT
  Age: 82 Year
  Sex: Female

DRUGS (3)
  1. BEVACIZUMAB [Suspect]
     Active Substance: BEVACIZUMAB
     Dosage: 400 MG EVERY TWO WEEKS FROM JUNE 9 FOLLOWED BY 200 MG EVERY TWO WEEKS FROM THE END OF NOV
  2. BEVACIZUMAB [Suspect]
     Active Substance: BEVACIZUMAB
     Indication: OVARIAN CANCER
     Dosage: 200 MG
     Route: 033
  3. CARBOPLATIN. [Suspect]
     Active Substance: CARBOPLATIN
     Indication: OVARIAN CANCER
     Dosage: 300 MG

REACTIONS (8)
  - Abdominal distension [None]
  - Metastasis [Unknown]
  - Multi-organ failure [Fatal]
  - Disease progression [Unknown]
  - Disease recurrence [Unknown]
  - Abdominal pain [None]
  - Pleural effusion [Unknown]
  - Dyspnoea [None]
